FAERS Safety Report 5601933-0 (Version None)
Quarter: 2008Q1

REPORT INFORMATION
  Report Type: 
  Country: None (occurrence: None)
  Receive Date: 20080125
  Receipt Date: 20080115
  Transmission Date: 20080703
  Serious: Yes (Other)
  Sender: FDA-Public Use
  Company Number: US-BAYER-200811263NA

PATIENT
  Age: 34 Year
  Sex: Female
  Weight: 70 kg

DRUGS (3)
  1. MIRENA [Suspect]
     Indication: CONTRACEPTION
     Route: 015
     Dates: start: 20040801, end: 20071103
  2. PROZAC [Concomitant]
     Indication: DEPRESSION
     Dates: start: 20070201
  3. MULTI-VITAMIN [Concomitant]

REACTIONS (4)
  - ABORTION SPONTANEOUS [None]
  - ANTEPARTUM HAEMORRHAGE [None]
  - IUD MIGRATION [None]
  - PREGNANCY WITH CONTRACEPTIVE DEVICE [None]
